FAERS Safety Report 4650928-2 (Version None)
Quarter: 2005Q2

REPORT INFORMATION
  Report Type: 
  Country: None (occurrence: None)
  Receive Date: 20050426
  Receipt Date: 20050411
  Transmission Date: 20051028
  Serious: Yes (Other)
  Sender: FDA-Public Use
  Company Number: 603338

PATIENT
  Age: 1 Year
  Sex: Male
  Weight: 9.2 kg

DRUGS (1)
  1. ADVATE [Suspect]
     Dates: start: 20050222

REACTIONS (1)
  - FACTOR VIII INHIBITION [None]
